APPROVED DRUG PRODUCT: DEXRAZOXANE HYDROCHLORIDE
Active Ingredient: DEXRAZOXANE HYDROCHLORIDE
Strength: EQ 500MG BASE/VIAL
Dosage Form/Route: INJECTABLE;INJECTION
Application: A200752 | Product #002 | TE Code: AP
Applicant: EUGIA PHARMA SPECIALITIES LTD
Approved: Oct 19, 2011 | RLD: No | RS: Yes | Type: RX